FAERS Safety Report 25769320 (Version 2)
Quarter: 2025Q3

REPORT INFORMATION
  Report Type: Spontaneous
  Country: JP (occurrence: JP)
  Receive Date: 20250906
  Receipt Date: 20250912
  Transmission Date: 20251020
  Serious: Yes (Death)
  Sender: ROCHE
  Company Number: JP-CHUGAI-2025028320

PATIENT
  Age: 8 Decade
  Sex: Male

DRUGS (2)
  1. AVASTIN [Suspect]
     Active Substance: BEVACIZUMAB
     Indication: Hepatocellular carcinoma
     Route: 042
  2. TECENTRIQ [Suspect]
     Active Substance: ATEZOLIZUMAB
     Indication: Hepatocellular carcinoma
     Route: 042

REACTIONS (1)
  - Sudden death [Fatal]
